FAERS Safety Report 24385950 (Version 8)
Quarter: 2025Q4

REPORT INFORMATION
  Report Type: Other
  Country: US (occurrence: US)
  Receive Date: 20241001
  Receipt Date: 20251125
  Transmission Date: 20260118
  Serious: No
  Sender: TRAVERE THERAPEUTICS
  Company Number: US-TRAVERE-2024TVT00971

PATIENT
  Age: 36 Year
  Sex: Male

DRUGS (5)
  1. FILSPARI [Suspect]
     Active Substance: SPARSENTAN
     Indication: IgA nephropathy
     Dosage: LOT NO-UNAVAILABLE PATIENT DID NOT HAVE WITH EXPIRATION DATE
     Route: 048
     Dates: start: 202405, end: 2024
  2. FILSPARI [Suspect]
     Active Substance: SPARSENTAN
     Dosage: LOT NUMBER: 1976070, EXPIRY DATE: 31-AUG-2025
     Route: 048
     Dates: start: 202405
  3. FILSPARI [Suspect]
     Active Substance: SPARSENTAN
     Route: 048
     Dates: start: 202405
  4. FILSPARI [Suspect]
     Active Substance: SPARSENTAN
     Route: 048
  5. TARPEYO [Concomitant]
     Active Substance: BUDESONIDE

REACTIONS (14)
  - Eye discharge [Recovering/Resolving]
  - Alanine aminotransferase increased [Recovering/Resolving]
  - Aspartate aminotransferase increased [Recovering/Resolving]
  - Swollen tear duct [Recovered/Resolved]
  - Pyrexia [Unknown]
  - Swelling of eyelid [Recovering/Resolving]
  - Eyelid pain [Unknown]
  - Joint swelling [Unknown]
  - Gait disturbance [Unknown]
  - Pain in extremity [Unknown]
  - Blood uric acid increased [None]
  - Arthralgia [Unknown]
  - Dizziness [Unknown]
  - Dyspnoea [Unknown]

NARRATIVE: CASE EVENT DATE: 20240910
